FAERS Safety Report 5799318-X (Version None)
Quarter: 2008Q3

REPORT INFORMATION
  Report Type: 
  Country: None (occurrence: None)
  Receive Date: 20080702
  Receipt Date: 20080621
  Transmission Date: 20090109
  Serious: Yes (Other)
  Sender: FDA-Public Use
  Company Number: US-PFIZER INC-2008052532

PATIENT
  Sex: Female
  Weight: 59 kg

DRUGS (4)
  1. LYRICA [Suspect]
     Indication: BACK PAIN
     Dates: start: 20080618, end: 20080620
  2. HYDROCODONE [Concomitant]
  3. FLEXERIL [Concomitant]
  4. FENTANYL [Concomitant]

REACTIONS (12)
  - ASTHENIA [None]
  - BACK PAIN [None]
  - BURNING SENSATION [None]
  - DIZZINESS [None]
  - DYSSTASIA [None]
  - EYE SWELLING [None]
  - GAIT DISTURBANCE [None]
  - MIGRAINE [None]
  - NAUSEA [None]
  - PALPITATIONS [None]
  - PRURITUS [None]
  - SWELLING [None]
